FAERS Safety Report 18621429 (Version 2)
Quarter: 2022Q3

REPORT INFORMATION
  Report Type: Spontaneous
  Country: CA (occurrence: CA)
  Receive Date: 20201216
  Receipt Date: 20220708
  Transmission Date: 20221027
  Serious: Yes (Other)
  Sender: FDA-Public Use
  Company Number: CA-GSKCCFAMERS-CASE-00923274_AE-54469

PATIENT

DRUGS (1)
  1. VENTOLIN [Suspect]
     Active Substance: ALBUTEROL SULFATE
     Indication: Asthma
     Dosage: UNK

REACTIONS (3)
  - Drug abuse [Unknown]
  - Drug dependence [Unknown]
  - Overdose [Unknown]
